FAERS Safety Report 7600405-1 (Version None)
Quarter: 2011Q3

REPORT INFORMATION
  Report Type: 
  Country: None (occurrence: None)
  Receive Date: 20110711
  Receipt Date: 20110630
  Transmission Date: 20111222
  Serious: Yes (Hospitalization, Other)
  Sender: FDA-Public Use
  Company Number: US-BAYER-2011-019014

PATIENT
  Sex: Female
  Weight: 68.027 kg

DRUGS (3)
  1. YASMIN [Suspect]
     Indication: ORAL CONTRACEPTION
     Dosage: UNK
     Route: 048
     Dates: start: 20020101, end: 20061201
  2. AMOXICILLIN [Concomitant]
     Dosage: 500 MG, QID
     Dates: start: 20020101, end: 20110101
  3. PROPRANOLOL [Concomitant]

REACTIONS (7)
  - CHEST PAIN [None]
  - ANXIETY [None]
  - ENZYME ABNORMALITY [None]
  - INJURY [None]
  - EMOTIONAL DISTRESS [None]
  - MYOCARDIAL INFARCTION [None]
  - PAIN [None]
